FAERS Safety Report 23234336 (Version 1)
Quarter: 2023Q4

REPORT INFORMATION
  Report Type: Report from Study
  Country: US (occurrence: US)
  Receive Date: 20231128
  Receipt Date: 20231128
  Transmission Date: 20240109
  Serious: Yes (Disabling, Other)
  Sender: FDA-Public Use
  Company Number: US-HORIZON THERAPEUTICS-HZN-2021-008310

PATIENT

DRUGS (1)
  1. TEPEZZA [Suspect]
     Active Substance: TEPROTUMUMAB-TRBW
     Indication: Endocrine ophthalmopathy
     Dosage: 8 INUSIONS
     Route: 042
     Dates: start: 202201, end: 202208

REACTIONS (15)
  - Physical disability [Unknown]
  - Deafness [Not Recovered/Not Resolved]
  - Product after taste [Recovered/Resolved]
  - Hypertension [Unknown]
  - Ear pain [Unknown]
  - Paranasal sinus discomfort [Unknown]
  - Sinus pain [Unknown]
  - Product design issue [Unknown]
  - Anxiety [Unknown]
  - Emotional distress [Unknown]
  - Rash [Unknown]
  - Muscle spasms [Recovered/Resolved]
  - Fatigue [Recovered/Resolved]
  - Headache [Unknown]
  - Lacrimation increased [Unknown]
